FAERS Safety Report 11269906 (Version 1)
Quarter: 2015Q3

REPORT INFORMATION
  Report Type: Spontaneous
  Country: US (occurrence: None)
  Receive Date: 20150713
  Receipt Date: 20150713
  Transmission Date: 20151125
  Serious: No
  Sender: FDA-Public Use
  Company Number: None

PATIENT
  Sex: Male

DRUGS (6)
  1. ZYTIGA [Suspect]
     Active Substance: ABIRATERONE ACETATE
     Indication: PROSTATE CANCER
     Route: 048
     Dates: start: 20150108
  2. PREDNISONE. [Concomitant]
     Active Substance: PREDNISONE
  3. LYRICA [Concomitant]
     Active Substance: PREGABALIN
  4. LISINOP/HCTZ [Concomitant]
  5. POT CL MICRO [Concomitant]
  6. PANTOPRAZOLE [Concomitant]
     Active Substance: PANTOPRAZOLE SODIUM

REACTIONS (2)
  - Pain in extremity [None]
  - Fatigue [None]
